FAERS Safety Report 12631435 (Version 2)
Quarter: 2016Q3

REPORT INFORMATION
  Report Type: Spontaneous
  Country: US (occurrence: US)
  Receive Date: 20160808
  Receipt Date: 20160808
  Transmission Date: 20161109
  Serious: No
  Sender: FDA-Public Use
  Company Number: US-BEH-2015053900

PATIENT
  Age: 6 Year
  Sex: Male

DRUGS (2)
  1. HIZENTRA [Suspect]
     Active Substance: HUMAN IMMUNOGLOBULIN G
     Dosage: EVERY MONDAY ON WEEKLY BASIS (INFUSIONS)
     Dates: start: 20150907, end: 20150907
  2. HIZENTRA [Suspect]
     Active Substance: HUMAN IMMUNOGLOBULIN G
     Indication: PRIMARY IMMUNODEFICIENCY SYNDROME
     Dosage: STARTED IN NOV 2014

REACTIONS (4)
  - Skin exfoliation [Unknown]
  - Application site scab [Unknown]
  - Extravasation [Unknown]
  - Application site erythema [Unknown]
